FAERS Safety Report 10145795 (Version 2)
Quarter: 2014Q2

REPORT INFORMATION
  Report Type: Spontaneous
  Country: US (occurrence: US)
  Receive Date: 20140501
  Receipt Date: 20140501
  Transmission Date: 20141212
  Serious: Yes (Other)
  Sender: FDA-Public Use
  Company Number: US-ABBVIE-14P-163-1207753-00

PATIENT
  Age: 77 Year
  Sex: Female
  Weight: 47.67 kg

DRUGS (5)
  1. CREON [Suspect]
     Indication: PANCREATITIS
     Dosage: PRESCRIBED 2 WITH EACH MEAL AND 1 W/SNACK
     Route: 048
     Dates: start: 20140223, end: 20140223
  2. CREON [Suspect]
     Dosage: TOOK ONLY 2 PILLS ONCE IN THE AM
     Route: 048
     Dates: start: 20140227, end: 20140227
  3. SIMVASTATIN [Concomitant]
     Indication: BLOOD CHOLESTEROL INCREASED
  4. VIIBRYD [Concomitant]
     Indication: DEPRESSION
  5. VITAMIN D NOS [Concomitant]
     Indication: VITAMIN SUPPLEMENTATION

REACTIONS (9)
  - Pancreatitis [Not Recovered/Not Resolved]
  - Depression [Not Recovered/Not Resolved]
  - Abdominal pain upper [Not Recovered/Not Resolved]
  - Abdominal rigidity [Not Recovered/Not Resolved]
  - Pain [Not Recovered/Not Resolved]
  - Insomnia [Recovered/Resolved]
  - Chest pain [Not Recovered/Not Resolved]
  - Burning sensation [Not Recovered/Not Resolved]
  - Malaise [Not Recovered/Not Resolved]
